FAERS Safety Report 7670066-4 (Version None)
Quarter: 2011Q3

REPORT INFORMATION
  Report Type: 
  Country: None (occurrence: None)
  Receive Date: 20110808
  Receipt Date: 20110728
  Transmission Date: 20111222
  Serious: Yes (Death)
  Sender: FDA-Public Use
  Company Number: KR-BAXTER-2011BH023466

PATIENT

DRUGS (4)
  1. MESNA [Concomitant]
     Indication: BONE SARCOMA
     Route: 065
  2. CISPLATIN [Suspect]
     Indication: BONE SARCOMA
     Route: 013
  3. DOXORUBICIN HCL [Suspect]
     Indication: BONE SARCOMA
     Route: 042
  4. IFOSFAMIDE [Suspect]
     Indication: BONE SARCOMA
     Route: 042

REACTIONS (1)
  - SEPTIC SHOCK [None]
